FAERS Safety Report 15783170 (Version 1)
Quarter: 2019Q1

REPORT INFORMATION
  Report Type: Spontaneous
  Country: US (occurrence: US)
  Receive Date: 20190102
  Receipt Date: 20190102
  Transmission Date: 20190417
  Serious: No
  Sender: FDA-Public Use
  Company Number: US-TEVA-2018-US-989495

PATIENT
  Sex: Female

DRUGS (1)
  1. CLEMASTINE FUMARATE TEVA [Suspect]
     Active Substance: CLEMASTINE FUMARATE
     Route: 065

REACTIONS (1)
  - Allergic reaction to excipient [Unknown]
